FAERS Safety Report 5734670-2 (Version None)
Quarter: 2008Q2

REPORT INFORMATION
  Report Type: 
  Country: None (occurrence: None)
  Receive Date: 20080508
  Receipt Date: 20080508
  Transmission Date: 20081010
  Serious: No
  Sender: FDA-Public Use
  Company Number: None

PATIENT
  Age: 39 Year
  Sex: Female
  Weight: 68.0396 kg

DRUGS (1)
  1. CREST PRO HEALTH RONSE   PROCTER + GAMBLE [Suspect]
     Indication: DENTAL DISORDER PROPHYLAXIS
     Dosage: 20ML  TWICE DAILY  DENTAL
     Route: 004
     Dates: start: 20080201, end: 20080506

REACTIONS (1)
  - TOOTH DISCOLOURATION [None]
